FAERS Safety Report 7247682-7 (Version None)
Quarter: 2011Q1

REPORT INFORMATION
  Report Type: 
  Country: None (occurrence: None)
  Receive Date: 20110127
  Receipt Date: 20110118
  Transmission Date: 20110831
  Serious: Yes (Hospitalization)
  Sender: FDA-Public Use
  Company Number: PHHO2011DE01223

PATIENT
  Sex: Male
  Weight: 18 kg

DRUGS (4)
  1. ACZ885 [Suspect]
     Indication: JUVENILE ARTHRITIS
     Dosage: 72 MG
     Route: 058
     Dates: start: 20101110, end: 20110107
  2. BLINDED PLACEBO [Suspect]
     Indication: JUVENILE ARTHRITIS
     Dosage: NOT TREATMENT
  3. BLINDED ACZ885 [Suspect]
     Indication: JUVENILE ARTHRITIS
     Dosage: NOT TREATMENT
  4. BLINDED NO TREATMENT RECEIVED [Suspect]
     Indication: JUVENILE ARTHRITIS
     Dosage: NOT TREATMENT

REACTIONS (3)
  - LYMPHADENOPATHY [None]
  - LYMPH NODE ABSCESS [None]
  - PYREXIA [None]
